FAERS Safety Report 20081346 (Version 1)
Quarter: 2021Q4

REPORT INFORMATION
  Report Type: Spontaneous
  Country: US (occurrence: US)
  Receive Date: 20211117
  Receipt Date: 20211117
  Transmission Date: 20220304
  Serious: Yes (Hospitalization, Other)
  Sender: FDA-Public Use
  Company Number: US-BIOVITRUM-2021US10732

PATIENT
  Sex: Male

DRUGS (3)
  1. SYNAGIS [Suspect]
     Active Substance: PALIVIZUMAB
     Indication: Tracheal disorder
     Route: 030
     Dates: start: 20210810
  2. SYNAGIS [Suspect]
     Active Substance: PALIVIZUMAB
     Indication: Chronic respiratory disease
  3. SYNAGIS [Suspect]
     Active Substance: PALIVIZUMAB
     Indication: Tracheostomy

REACTIONS (2)
  - Rhinovirus infection [Unknown]
  - Pneumonia [Unknown]
